FAERS Safety Report 21633454 (Version 1)
Quarter: 2022Q4

REPORT INFORMATION
  Report Type: Report from Study
  Country: CA (occurrence: CA)
  Receive Date: 20221123
  Receipt Date: 20221123
  Transmission Date: 20230113
  Serious: Yes (Other)
  Sender: FDA-Public Use
  Company Number: CA-BRISTOL-MYERS SQUIBB COMPANY-2022-139701

PATIENT
  Age: 82 Year
  Sex: Male

DRUGS (1)
  1. THALOMID [Suspect]
     Active Substance: THALIDOMIDE
     Indication: Angiodysplasia
     Dosage: 56C/28
     Route: 048
     Dates: start: 20221031

REACTIONS (4)
  - Pruritus [Unknown]
  - Cataract [Unknown]
  - Macular degeneration [Unknown]
  - Off label use [Unknown]

NARRATIVE: CASE EVENT DATE: 20221031
